FAERS Safety Report 21568062 (Version 1)
Quarter: 2022Q4

REPORT INFORMATION
  Report Type: Spontaneous
  Country: US (occurrence: None)
  Receive Date: 20221107
  Receipt Date: 20221107
  Transmission Date: 20230113
  Serious: Yes (Hospitalization)
  Sender: FDA-Public Use
  Company Number: None

PATIENT
  Sex: Female

DRUGS (8)
  1. AMBRISENTAN [Suspect]
     Active Substance: AMBRISENTAN
     Indication: Pulmonary arterial hypertension
     Dosage: FREQUENCY : AS DIRECTED;?
     Route: 048
     Dates: start: 20210803
  2. ACETAMINOPHEN [Concomitant]
     Active Substance: ACETAMINOPHEN
  3. ASPIRIN CHILD/CHEW [Concomitant]
  4. EXJADE [Concomitant]
     Active Substance: DEFERASIROX
  5. NORCO TAB [Concomitant]
  6. OXYCODONE [Concomitant]
     Active Substance: OXYCODONE
  7. PENICILLIN V POTASSIUM [Concomitant]
     Active Substance: PENICILLIN V POTASSIUM
  8. STANBACK POW HEADACH [Concomitant]

REACTIONS (1)
  - Hospitalisation [None]
